FAERS Safety Report 16408194 (Version 1)
Quarter: 2019Q2

REPORT INFORMATION
  Report Type: Spontaneous
  Country: ES (occurrence: ES)
  Receive Date: 20190610
  Receipt Date: 20190610
  Transmission Date: 20190711
  Serious: Yes (Other)
  Sender: FDA-Public Use
  Company Number: ES-TEVA-2019-ES-1059954

PATIENT
  Age: 74 Year
  Sex: Female

DRUGS (9)
  1. ACETILSALICILICO ACIDO (176A) [Concomitant]
     Active Substance: ASPIRIN
  2. SUMIAL 40 MG COMPRIMIDOS RECUBIERTOS CON PELICULA , 50 COMPRIMIDOS [Concomitant]
  3. NITROGLICERINA +  CAFEINA [Concomitant]
  4. ALPRAZOLAM 0,25 MG COMPRIMIDO [Concomitant]
  5. ATORVASTATINA 20 MG COMPRIMIDO [Suspect]
     Active Substance: ATORVASTATIN
     Indication: ANGINA PECTORIS
     Route: 048
     Dates: start: 20180619
  6. PARACETAMOL 650 MG COMPRIMIDO [Concomitant]
  7. PANTOPRAZOL 20 MG COMPRIMIDO [Concomitant]
     Active Substance: PANTOPRAZOLE SODIUM
  8. CIANOCOBALAMINA 1 MG INYECTABLE 2 ML [Concomitant]
  9. TORASEMIDA 2,5 MG COMPRIMIDO [Concomitant]

REACTIONS (1)
  - Gynaecomastia [Recovering/Resolving]

NARRATIVE: CASE EVENT DATE: 20180622
